FAERS Safety Report 24084588 (Version 1)
Quarter: 2024Q3

REPORT INFORMATION
  Report Type: Spontaneous
  Country: DE (occurrence: DE)
  Receive Date: 20240712
  Receipt Date: 20240712
  Transmission Date: 20241017
  Serious: No
  Sender: PIERRE FABRE MEDICAMENT
  Company Number: DE-PFM-2022-01030

PATIENT
  Age: 35 Year
  Sex: Female

DRUGS (7)
  1. PROPRANOLOL [Suspect]
     Active Substance: PROPRANOLOL HYDROCHLORIDE
     Indication: Postural orthostatic tachycardia syndrome
     Dosage: 80 MG/DAY
     Route: 065
  2. PROPRANOLOL [Suspect]
     Active Substance: PROPRANOLOL HYDROCHLORIDE
     Indication: Off label use
  3. CLONIDINE [Suspect]
     Active Substance: CLONIDINE
     Indication: Postural orthostatic tachycardia syndrome
     Dosage: 675 UG/DAY
     Route: 065
  4. CLONIDINE [Suspect]
     Active Substance: CLONIDINE
     Dosage: 525 UG/DAY
     Route: 065
  5. NEBIVOLOL [Suspect]
     Active Substance: NEBIVOLOL
     Indication: Postural orthostatic tachycardia syndrome
     Dosage: 5 MG/DAY
     Route: 065
  6. ETILEFRINE HYDROCHLORIDE [Suspect]
     Active Substance: ETILEFRINE HYDROCHLORIDE
     Indication: Postural orthostatic tachycardia syndrome
     Dosage: 10 MG/DAY
     Route: 065
  7. MIDODRINE [Suspect]
     Active Substance: MIDODRINE
     Indication: Postural orthostatic tachycardia syndrome
     Dosage: 7.5 MG/DAY
     Route: 065

REACTIONS (3)
  - Off label use [Unknown]
  - Product use issue [Unknown]
  - Product use in unapproved indication [Unknown]
